FAERS Safety Report 6397746-5 (Version None)
Quarter: 2009Q4

REPORT INFORMATION
  Report Type: 
  Country: None (occurrence: None)
  Receive Date: 20091012
  Receipt Date: 20091006
  Transmission Date: 20100525
  Serious: Yes (Hospitalization)
  Sender: FDA-Public Use
  Company Number: JP-ELI_LILLY_AND_COMPANY-JP200910001008

PATIENT
  Age: 78 Year
  Sex: Female

DRUGS (1)
  1. GEMZAR [Suspect]
     Dosage: 1200 MG, OTHER
     Route: 042

REACTIONS (1)
  - DISORIENTATION [None]
